FAERS Safety Report 7469086-4 (Version None)
Quarter: 2011Q2

REPORT INFORMATION
  Report Type: 
  Country: None (occurrence: None)
  Receive Date: 20110510
  Receipt Date: 20110421
  Transmission Date: 20111010
  Serious: No
  Sender: FDA-Public Use
  Company Number: US-B.I. PHARMACEUTICALS,INC./RIDGEFIELD-2011-BP-05658BP

PATIENT
  Sex: Male
  Weight: 80.74 kg

DRUGS (11)
  1. DIGOXIN [Concomitant]
     Indication: ATRIAL FIBRILLATION
     Dosage: 250 MCG
     Route: 048
  2. SIMVASTATIN [Concomitant]
     Indication: BLOOD TRIGLYCERIDES INCREASED
     Dosage: 20 MG
     Route: 048
  3. VITAMIN C [Concomitant]
     Indication: SUPPLEMENTATION THERAPY
     Dosage: 500 MG
     Route: 048
  4. VITAMIN B SUPERMAX COMPLEX [Concomitant]
     Indication: SUPPLEMENTATION THERAPY
     Route: 048
  5. CENTRUM SILVER 50 PLUS [Concomitant]
     Indication: SUPPLEMENTATION THERAPY
     Route: 048
  6. VITAMIN D [Concomitant]
     Indication: SUPPLEMENTATION THERAPY
     Route: 048
  7. BENEFIBER [Concomitant]
     Indication: PROPHYLAXIS
     Route: 048
  8. PRADAXA [Suspect]
     Indication: ATRIAL FIBRILLATION
     Dosage: 300 MG
     Route: 048
     Dates: start: 20110119
  9. VITAMIN E [Concomitant]
     Indication: SUPPLEMENTATION THERAPY
     Dosage: 400 U
     Route: 048
  10. GLUCOSAMINE [Concomitant]
     Indication: SUPPLEMENTATION THERAPY
     Dosage: 2000 MG
     Route: 048
  11. MEGNESIUM WITH CHELATED ZINC [Concomitant]
     Indication: SUPPLEMENTATION THERAPY
     Route: 048

REACTIONS (4)
  - DIARRHOEA [None]
  - ANORECTAL DISCOMFORT [None]
  - CYST [None]
  - RECTAL POLYP [None]
